FAERS Safety Report 22655616 (Version 1)
Quarter: 2023Q2

REPORT INFORMATION
  Report Type: Spontaneous
  Country: US (occurrence: None)
  Receive Date: 20230629
  Receipt Date: 20230629
  Transmission Date: 20230722
  Serious: No
  Sender: FDA-Public Use
  Company Number: None

PATIENT
  Age: 46 Year
  Sex: Female

DRUGS (1)
  1. REBIF REBIDOSE [Suspect]
     Active Substance: INTERFERON BETA-1A
     Dosage: OTHER STRENGTH : 44/0.5 UG/ML;?
     Route: 058

REACTIONS (3)
  - Blindness unilateral [None]
  - Neuromyelitis optica spectrum disorder [None]
  - Therapy cessation [None]

NARRATIVE: CASE EVENT DATE: 20230629
